FAERS Safety Report 14967137 (Version 1)
Quarter: 2018Q3

REPORT INFORMATION
  Report Type: Spontaneous
  Country: KR (occurrence: KR)
  Receive Date: 20180604
  Receipt Date: 20180604
  Transmission Date: 20181010
  Serious: Yes (Death)
  Sender: FDA-Public Use
  Company Number: KR-CHEPLA-C20180221

PATIENT
  Age: 52 Year
  Sex: Male

DRUGS (9)
  1. ALL?TRANS RETINOIC ACID (ATRA) [Suspect]
     Active Substance: TRETINOIN
     Indication: ACUTE PROMYELOCYTIC LEUKAEMIA
  2. IDARUBICIN [Suspect]
     Active Substance: IDARUBICIN
  3. DEXAMETHASONE. [Suspect]
     Active Substance: DEXAMETHASONE
  4. ALL?TRANS RETINOIC ACID (ATRA) [Suspect]
     Active Substance: TRETINOIN
     Indication: ACUTE PROMYELOCYTIC LEUKAEMIA
  5. ALL?TRANS RETINOIC ACID (ATRA) [Suspect]
     Active Substance: TRETINOIN
     Indication: ACUTE PROMYELOCYTIC LEUKAEMIA
  6. AMPHOTERICIN B. [Suspect]
     Active Substance: AMPHOTERICIN B
     Indication: ASPERGILLUS TEST
  7. MEROPENEM. [Suspect]
     Active Substance: MEROPENEM
  8. VANCOMYCIN [Suspect]
     Active Substance: VANCOMYCIN
  9. FLUCANOZOLE [Suspect]
     Active Substance: FLUCONAZOLE

REACTIONS (10)
  - Aspergillus infection [Recovered/Resolved]
  - Shock [Fatal]
  - Pyrexia [Unknown]
  - General physical health deterioration [Not Recovered/Not Resolved]
  - Azotaemia [Not Recovered/Not Resolved]
  - Multiple organ dysfunction syndrome [Fatal]
  - Pleural effusion [Recovered/Resolved]
  - Acute promyelocytic leukaemia differentiation syndrome [Not Recovered/Not Resolved]
  - Arthralgia [Unknown]
  - Refusal of treatment by patient [None]
